FAERS Safety Report 23450197 (Version 1)
Quarter: 2024Q1

REPORT INFORMATION
  Report Type: Spontaneous
  Country: US (occurrence: US)
  Receive Date: 20240129
  Receipt Date: 20240129
  Transmission Date: 20240410
  Serious: Yes (Death, Other)
  Sender: FDA-Public Use
  Company Number: US-AMGEN-USASP2024016955

PATIENT
  Age: 67 Year
  Sex: Male

DRUGS (2)
  1. PANITUMUMAB [Suspect]
     Active Substance: PANITUMUMAB
     Indication: Penile squamous cell carcinoma
     Dosage: UNK, ONE CYCLE
     Route: 065
  2. PANITUMUMAB [Suspect]
     Active Substance: PANITUMUMAB
     Indication: Off label use

REACTIONS (4)
  - Death [Fatal]
  - Eastern Cooperative Oncology Group performance status worsened [Unknown]
  - Hospice care [Unknown]
  - Off label use [Unknown]
